FAERS Safety Report 8776268 (Version 3)
Quarter: 2012Q4

REPORT INFORMATION
  Report Type: 
  Country: US (occurrence: US)
  Receive Date: 20120910
  Receipt Date: 20121001
  Transmission Date: 20130627
  Serious: Yes (Death, Hospitalization, Other)
  Sender: FDA-Public Use
  Company Number: US-BAXTER-2012BAX016321

PATIENT
  Age: 79 Year
  Sex: Male

DRUGS (1)
  1. DIANEAL LOW CALCIUM [Suspect]
     Indication: PERITONEAL DIALYSIS
     Dosage: 14.4 L
     Route: 033
     Dates: end: 20120830

REACTIONS (5)
  - Therapy cessation [Fatal]
  - Gastrointestinal haemorrhage [Recovered/Resolved]
  - Subcutaneous abscess [Unknown]
  - Decubitus ulcer [Not Recovered/Not Resolved]
  - Asthenia [Not Recovered/Not Resolved]
